FAERS Safety Report 6703181-X (Version None)
Quarter: 2010Q2

REPORT INFORMATION
  Report Type: 
  Country: None (occurrence: None)
  Receive Date: 20100430
  Receipt Date: 20100422
  Transmission Date: 20101027
  Serious: No
  Sender: FDA-Public Use
  Company Number: US-BIOGENIDEC-2010BI013712

PATIENT
  Sex: Female

DRUGS (1)
  1. AVONEX [Suspect]
     Indication: MULTIPLE SCLEROSIS
     Route: 030
     Dates: start: 19961101

REACTIONS (8)
  - BALANCE DISORDER [None]
  - BIOPSY BREAST NORMAL [None]
  - DRUG EFFECT DECREASED [None]
  - GENERAL SYMPTOM [None]
  - HEAD INJURY [None]
  - MUSCLE SPASTICITY [None]
  - MUSCLE TIGHTNESS [None]
  - ROAD TRAFFIC ACCIDENT [None]
